FAERS Safety Report 18220074 (Version 2)
Quarter: 2020Q3

REPORT INFORMATION
  Report Type: Report from Study
  Country: None (occurrence: AU)
  Receive Date: 20200902
  Receipt Date: 20200909
  Transmission Date: 20201103
  Serious: Yes (Hospitalization)
  Sender: FDA-Public Use
  Company Number: AU-ABBVIE-20K-008-3526645-00

PATIENT
  Sex: Male

DRUGS (2)
  1. DUODOPA [Suspect]
     Active Substance: CARBIDOPA\LEVODOPA
     Dosage: MD 11ML 07:30, DAY RATE 3.6 ML 07:00?20:00, NR 1.9ML 20:00 ? 07:00?100ML GEL CASSETTE
     Route: 050
     Dates: start: 20200827
  2. DUODOPA [Suspect]
     Active Substance: CARBIDOPA\LEVODOPA
     Indication: PARKINSON^S DISEASE
     Route: 050
     Dates: start: 20180723, end: 202008

REACTIONS (11)
  - Fall [Unknown]
  - Gait disturbance [Not Recovered/Not Resolved]
  - Stoma site discharge [Unknown]
  - Mobility decreased [Recovered/Resolved]
  - Device occlusion [Unknown]
  - Therapeutic response shortened [Unknown]
  - Dyskinesia [Unknown]
  - Musculoskeletal disorder [Unknown]
  - Therapeutic product effect variable [Recovering/Resolving]
  - Stoma site erythema [Unknown]
  - Freezing phenomenon [Not Recovered/Not Resolved]
